FAERS Safety Report 18622435 (Version 1)
Quarter: 2020Q4

REPORT INFORMATION
  Report Type: Spontaneous
  Country: CA (occurrence: CA)
  Receive Date: 20201216
  Receipt Date: 20201216
  Transmission Date: 20210114
  Serious: Yes (Death)
  Sender: FDA-Public Use
  Company Number: CA-REGENERON PHARMACEUTICALS, INC.-2020-94733

PATIENT

DRUGS (2)
  1. EYLEA [Suspect]
     Active Substance: AFLIBERCEPT
     Indication: RETINAL VEIN OCCLUSION
     Dosage: UNK, EYE UNK; TOTAL NUMBER OF DOSES UNK
     Route: 031
  2. EYLEA [Suspect]
     Active Substance: AFLIBERCEPT
     Dosage: UNK, EYE UNK; LAST DOSE PRIOR TO EVENT
     Route: 031
     Dates: start: 20200901, end: 20200901

REACTIONS (1)
  - Death [Fatal]

NARRATIVE: CASE EVENT DATE: 20201124
